FAERS Safety Report 8505083-5 (Version None)
Quarter: 2012Q3

REPORT INFORMATION
  Report Type: 
  Country: None (occurrence: None)
  Receive Date: 20120712
  Receipt Date: 20120629
  Transmission Date: 20120928
  Serious: Yes (Hospitalization)
  Sender: FDA-Public Use
  Company Number: JP-FRI-1000036896

PATIENT
  Age: 75 Year
  Sex: Male

DRUGS (8)
  1. MEMANTINE HCL [Suspect]
     Indication: DEMENTIA
     Route: 048
     Dates: start: 20120502, end: 20120508
  2. MEMANTINE HCL [Suspect]
     Dosage: 10 MG
     Route: 048
     Dates: start: 20120509, end: 20120531
  3. OMEPRAZOLE [Concomitant]
  4. ZOLPIDEM [Concomitant]
  5. PRIMPERAN TAB [Concomitant]
  6. DEPAKENE [Concomitant]
  7. YOKUKANSANKACHIMPIHANGE [Concomitant]
  8. RISPERDAL [Concomitant]

REACTIONS (1)
  - PYREXIA [None]
